FAERS Safety Report 5940110-0 (Version None)
Quarter: 2008Q4

REPORT INFORMATION
  Report Type: 
  Country: None (occurrence: None)
  Receive Date: 20081104
  Receipt Date: 20080129
  Transmission Date: 20090506
  Serious: No
  Sender: FDA-Public Use
  Company Number: US-BAYER-200810466BCC

PATIENT
  Age: 27 Year
  Sex: Female
  Weight: 48 kg

DRUGS (2)
  1. ALEVE [Suspect]
     Indication: DYSMENORRHOEA
     Dosage: AS USED: 880/440 MG  UNIT DOSE: 220 MG
     Route: 048
     Dates: start: 20080128
  2. BIRTH CONTROL PILLS [Concomitant]

REACTIONS (2)
  - ABDOMINAL PAIN UPPER [None]
  - DIARRHOEA [None]
